FAERS Safety Report 16879819 (Version 1)
Quarter: 2019Q4

REPORT INFORMATION
  Report Type: Spontaneous
  Country: US (occurrence: US)
  Receive Date: 20191003
  Receipt Date: 20191003
  Transmission Date: 20200122
  Serious: No
  Sender: FDA-Public Use
  Company Number: US-AMGEN-USASP2019160113

PATIENT
  Age: 67 Year
  Sex: Female

DRUGS (1)
  1. ENBREL [Suspect]
     Active Substance: ETANERCEPT
     Indication: RHEUMATOID ARTHRITIS
     Dosage: 50 MILLIGRAM, EVERY OTHER WEEK
     Route: 065

REACTIONS (5)
  - Drug dose omission by device [Unknown]
  - Asthenia [Unknown]
  - Fatigue [Unknown]
  - Intentional product misuse [Unknown]
  - Device issue [Unknown]
